FAERS Safety Report 26072580 (Version 1)
Quarter: 2025Q4

REPORT INFORMATION
  Report Type: Report from Study
  Country: US (occurrence: US)
  Receive Date: 20251120
  Receipt Date: 20251120
  Transmission Date: 20260117
  Serious: Yes (Other)
  Sender: ABBVIE
  Company Number: US-ABBVIE-6554057

PATIENT
  Sex: Female

DRUGS (1)
  1. CREON [Suspect]
     Active Substance: PANCRELIPASE AMYLASE\PANCRELIPASE LIPASE\PANCRELIPASE PROTEASE
     Indication: Product used for unknown indication
     Route: 048
     Dates: start: 20150101

REACTIONS (5)
  - Hydrocephalus [Unknown]
  - Migraine [Not Recovered/Not Resolved]
  - Neck pain [Recovered/Resolved]
  - Complex regional pain syndrome [Not Recovered/Not Resolved]
  - Cerebrospinal fluid retention [Unknown]
